FAERS Safety Report 9444704 (Version 1)
Quarter: 2013Q3

REPORT INFORMATION
  Report Type: Spontaneous
  Country: JP (occurrence: JP)
  Receive Date: 20130807
  Receipt Date: 20130807
  Transmission Date: 20140515
  Serious: Yes (Other)
  Sender: FDA-Public Use
  Company Number: JP-PFIZER INC-2013225330

PATIENT
  Age: 76 Year
  Sex: Male

DRUGS (5)
  1. TOVIAZ [Suspect]
     Indication: POLLAKIURIA
     Dosage: 4 MG, DAILY
     Route: 048
     Dates: start: 201306, end: 20130628
  2. TOVIAZ [Suspect]
     Indication: MICTURITION URGENCY
  3. EXFORGE [Concomitant]
     Dosage: UNK
  4. MEVALOTIN [Concomitant]
     Dosage: UNK
  5. BUFERIN [Concomitant]
     Dosage: UNK

REACTIONS (3)
  - Cholecystitis [Unknown]
  - Abdominal distension [Recovered/Resolved]
  - Decreased appetite [Recovered/Resolved]
